FAERS Safety Report 5895284-7 (Version None)
Quarter: 2008Q3

REPORT INFORMATION
  Report Type: 
  Country: None (occurrence: None)
  Receive Date: 20080924
  Receipt Date: 20080919
  Transmission Date: 20090109
  Serious: Yes (Other)
  Sender: FDA-Public Use
  Company Number: NL-ASTRAZENECA-2008AC02498

PATIENT
  Age: 38 Year
  Sex: Female

DRUGS (5)
  1. PROPOFOL [Suspect]
     Dosage: 30 ML, AROUND 300 MG, ACCIDENTAL EXTRAVASATION
     Route: 042
  2. FLOXAPEN [Suspect]
     Dosage: 1000 MG (IN 100ML NACL 0.9%), EXTRAVASATION
  3. HARTMANN'S SOLUTION [Suspect]
     Dosage: EXTRAVASATION
  4. ADRIAMYCIN PFS [Concomitant]
     Dosage: 95 MG, 7 CYCLES
  5. CYCLOPHOSPHAMIDE [Concomitant]
     Dosage: 950 MG, 7 CYLCES

REACTIONS (2)
  - ACCIDENTAL EXPOSURE [None]
  - ADMINISTRATION SITE PAIN [None]
